FAERS Safety Report 5192814-8 (Version None)
Quarter: 2006Q4

REPORT INFORMATION
  Report Type: 
  Country: None (occurrence: None)
  Receive Date: 20061228
  Receipt Date: 20051109
  Transmission Date: 20070319
  Serious: No
  Sender: FDA-Public Use
  Company Number: US-GLAXOSMITHKLINE-A0581618A

PATIENT
  Sex: Male

DRUGS (2)
  1. FLONASE [Suspect]
     Indication: DRUG USE FOR UNKNOWN INDICATION
     Route: 065
  2. ZYRTEC [Concomitant]

REACTIONS (2)
  - SNEEZING [None]
  - THERAPEUTIC RESPONSE DECREASED [None]
